FAERS Safety Report 17787472 (Version 2)
Quarter: 2020Q2

REPORT INFORMATION
  Report Type: Report from Study
  Country: None (occurrence: US)
  Receive Date: 20200515
  Receipt Date: 20200601
  Transmission Date: 20200714
  Serious: Yes (Other)
  Sender: FDA-Public Use
  Company Number: US-ABBVIE-20K-163-3295656-00

PATIENT
  Sex: Female

DRUGS (4)
  1. VENCLEXTA [Suspect]
     Active Substance: VENETOCLAX
     Indication: PLASMA CELL MYELOMA RECURRENT
     Route: 048
     Dates: start: 20190202
  2. VENCLEXTA [Suspect]
     Active Substance: VENETOCLAX
     Dosage: DOSE INCREASED
     Route: 048
     Dates: end: 20200515
  3. VENCLEXTA [Suspect]
     Active Substance: VENETOCLAX
     Route: 048
  4. VENCLEXTA [Suspect]
     Active Substance: VENETOCLAX
     Route: 048
     Dates: start: 20200520

REACTIONS (7)
  - Joint swelling [Unknown]
  - Joint effusion [Unknown]
  - Dyschromatopsia [Unknown]
  - Neoplasm malignant [Unknown]
  - Diarrhoea [Recovering/Resolving]
  - Blood magnesium decreased [Unknown]
  - Decreased activity [Unknown]
